FAERS Safety Report 6028520-7 (Version None)
Quarter: 2008Q4

REPORT INFORMATION
  Report Type: 
  Country: None (occurrence: None)
  Receive Date: 20081231
  Receipt Date: 20081231
  Transmission Date: 20090506
  Serious: Yes (Life-Threatening, Hospitalization)
  Sender: FDA-Public Use
  Company Number: None

PATIENT

DRUGS (1)
  1. NAPROXEN [Suspect]
     Indication: PAIN
     Dosage: 1 TAB BID PO
     Route: 048
     Dates: start: 20080108, end: 20080816

REACTIONS (4)
  - ERYTHEMA MULTIFORME [None]
  - LICHEN PLANUS [None]
  - STEVENS-JOHNSON SYNDROME [None]
  - VASCULITIS [None]
